APPROVED DRUG PRODUCT: DESOGESTREL AND ETHINYL ESTRADIOL
Active Ingredient: DESOGESTREL; ETHINYL ESTRADIOL
Strength: 0.15MG;0.03MG
Dosage Form/Route: TABLET;ORAL-28
Application: A076915 | Product #001 | TE Code: AB
Applicant: WATSON LABORATORIES INC
Approved: Jul 29, 2005 | RLD: No | RS: No | Type: RX